FAERS Safety Report 25053930 (Version 1)
Quarter: 2025Q1

REPORT INFORMATION
  Report Type: Spontaneous
  Country: US (occurrence: US)
  Receive Date: 20250307
  Receipt Date: 20250307
  Transmission Date: 20250408
  Serious: No
  Sender: SANOFI AVENTIS
  Company Number: US-SANOFI-02431039

PATIENT
  Age: 28 Year
  Sex: Female

DRUGS (1)
  1. TUBERSOL [Suspect]
     Active Substance: TUBERCULIN PURIFIED PROTEIN DERIVATIVE
     Indication: Skin test
     Route: 023
     Dates: start: 20250211, end: 20250211

REACTIONS (1)
  - Poor quality product administered [Unknown]

NARRATIVE: CASE EVENT DATE: 20250211
